FAERS Safety Report 12587212 (Version 1)
Quarter: 2016Q3

REPORT INFORMATION
  Report Type: Spontaneous
  Country: DK (occurrence: DK)
  Receive Date: 20160725
  Receipt Date: 20160725
  Transmission Date: 20161109
  Serious: Yes (Disabling)
  Sender: FDA-Public Use
  Company Number: DK-ASTELLAS-2016US027762

PATIENT
  Sex: Male

DRUGS (5)
  1. BETMIGA [Suspect]
     Active Substance: MIRABEGRON
     Route: 048
     Dates: end: 20160716
  2. OXAZEPAM. [Concomitant]
     Active Substance: OXAZEPAM
     Indication: ANXIETY
     Route: 048
  3. BETMIGA [Suspect]
     Active Substance: MIRABEGRON
     Indication: HYPERTONIC BLADDER
     Route: 048
  4. PANODIL [Concomitant]
     Active Substance: ACETAMINOPHEN
     Indication: PAIN
     Route: 048
  5. KODIMAGNYL                         /00186401/ [Concomitant]
     Indication: PAIN
     Route: 048

REACTIONS (2)
  - Drug ineffective [Unknown]
  - Urinary hesitation [Not Recovered/Not Resolved]
